FAERS Safety Report 5551196-X (Version None)
Quarter: 2007Q4

REPORT INFORMATION
  Report Type: 
  Country: None (occurrence: None)
  Receive Date: 20071127
  Receipt Date: 20070320
  Transmission Date: 20080405
  Serious: Yes (Other)
  Sender: FDA-Public Use
  Company Number: CHPA2007US03988

PATIENT
  Age: 67 Year
  Sex: Female
  Weight: 77.1 kg

DRUGS (5)
  1. WALLMART/EQUATE (NCH)(NICOTINE) TRANS-THERAPEUTIC-SYSTEM [Suspect]
     Indication: SMOKING CESSATION THERAPY
     Dosage: 21 MG, QD, TRANSDERMAL
     Route: 062
     Dates: start: 20070319, end: 20070320
  2. PREVACID [Concomitant]
  3. . [Concomitant]
  4. . [Concomitant]
  5. . [Concomitant]

REACTIONS (2)
  - BLOOD PRESSURE INCREASED [None]
  - PALPITATIONS [None]
